FAERS Safety Report 8588250-4 (Version None)
Quarter: 2012Q3

REPORT INFORMATION
  Report Type: 
  Country: None (occurrence: None)
  Receive Date: 20120813
  Receipt Date: 20120801
  Transmission Date: 20120928
  Serious: Yes (Other)
  Sender: FDA-Public Use
  Company Number: US-BAYER-2012-044286

PATIENT
  Age: 23 Year
  Sex: Female

DRUGS (12)
  1. NABUMETONE [Concomitant]
     Dosage: 500 MG, UNK
  2. XANAX [Concomitant]
     Indication: ANXIETY
     Dosage: 0.5 MG, TID PRN
     Dates: start: 20061116
  3. CEPHALEXIN [Concomitant]
     Dosage: 500 MG, QID
     Route: 048
  4. ALPRAZOLAM [Concomitant]
     Dosage: 0.25 MG, 1 TABLET EVERY DAY
     Route: 048
  5. XANAX [Concomitant]
     Indication: PANIC REACTION
     Dosage: 0.5 MG, TID PRN
     Dates: start: 20061117
  6. METOCLOPRAMIDE [Concomitant]
     Indication: VOMITING
  7. ALLEGRA [Concomitant]
  8. YASMIN [Suspect]
     Dosage: UNK
     Dates: start: 20040101, end: 20061205
  9. METOCLOPRAMIDE [Concomitant]
     Indication: NAUSEA
     Dosage: 10 MG, TID AS NEEDED
     Route: 048
  10. OXYCODONE HCL AND ACETAMINOPHEN [Concomitant]
     Dosage: 7.5-325 MG 1 TABLET EVERY 4 HOURS AS DIRECTED
     Route: 048
     Dates: start: 20061117
  11. ZOVIRAX [Concomitant]
     Dosage: APPLY 5 TIMES A DAY AS NEEDED AS DIRECTED
  12. HYDROCODONE BITARTRATE + ACETAMINOPHEN [Concomitant]
     Indication: PAIN
     Dosage: 5-500 1-2 TABLETS EVERY 4-6 HOURS AS NEEDED
     Dates: start: 20061124

REACTIONS (3)
  - PAIN [None]
  - DEEP VEIN THROMBOSIS [None]
  - INJURY [None]
